FAERS Safety Report 7901465-0 (Version None)
Quarter: 2011Q4

REPORT INFORMATION
  Report Type: 
  Country: None (occurrence: None)
  Receive Date: 20111108
  Receipt Date: 20111031
  Transmission Date: 20120403
  Serious: Yes (Life-Threatening, Hospitalization, Other)
  Sender: FDA-Public Use
  Company Number: US-BAYER-201026626NA

PATIENT
  Age: 41 Year
  Sex: Female
  Weight: 61 kg

DRUGS (6)
  1. VICODIN [Concomitant]
  2. YAZ [Suspect]
     Indication: PREMENSTRUAL SYNDROME
     Dosage: UNK
     Route: 048
     Dates: start: 20080101
  3. YASMIN [Suspect]
     Dosage: UNK
     Dates: start: 20070101
  4. PROPOXYPHENE HYDROCHLORIDE [Concomitant]
  5. TYLENOL-500 [Concomitant]
  6. IBUPROFEN [Concomitant]

REACTIONS (10)
  - TRAUMATIC LUNG INJURY [None]
  - OEDEMA PERIPHERAL [None]
  - DEEP VEIN THROMBOSIS [None]
  - PULMONARY EMBOLISM [None]
  - PAIN [None]
  - DYSPNOEA [None]
  - DIZZINESS [None]
  - PAIN IN EXTREMITY [None]
  - FATIGUE [None]
  - CHEST PAIN [None]
